FAERS Safety Report 4510453-6 (Version None)
Quarter: 2004Q4

REPORT INFORMATION
  Report Type: 
  Country: None (occurrence: None)
  Receive Date: 20041124
  Receipt Date: 20040816
  Transmission Date: 20050328
  Serious: Yes (Other)
  Sender: FDA-Public Use
  Company Number: NL-GLAXOSMITHKLINE-B0347456A

PATIENT
  Age: 38 Year
  Sex: Female

DRUGS (3)
  1. MALARONE [Suspect]
     Route: 065
     Dates: start: 20040813, end: 20040817
  2. HEPATITIS A VACCINE [Suspect]
     Dates: start: 20040618
  3. STAMARIL [Concomitant]
     Dates: start: 20040630

REACTIONS (1)
  - ABORTION SPONTANEOUS [None]
